FAERS Safety Report 18383351 (Version 1)
Quarter: 2020Q4

REPORT INFORMATION
  Report Type: Spontaneous
  Country: US (occurrence: US)
  Receive Date: 20201014
  Receipt Date: 20201014
  Transmission Date: 20210114
  Serious: Yes (Other)
  Sender: FDA-Public Use
  Company Number: US-ASTRAZENECA-2020SF30098

PATIENT
  Age: 35 Year
  Sex: Male
  Weight: 129.3 kg

DRUGS (15)
  1. SEROQUEL [Suspect]
     Active Substance: QUETIAPINE FUMARATE
     Indication: SCHIZOPHRENIA
     Dosage: 200.0MG UNKNOWN
     Route: 048
  2. SEROQUEL [Suspect]
     Active Substance: QUETIAPINE FUMARATE
     Indication: SCHIZOPHRENIA
     Dosage: 100 MG. ONE A DAY BEFORE SLEEP UNKNOWN
     Route: 048
  3. SEROQUEL [Suspect]
     Active Substance: QUETIAPINE FUMARATE
     Indication: INSOMNIA
     Dosage: 600.0MG UNKNOWN
     Route: 048
  4. SEROQUEL [Suspect]
     Active Substance: QUETIAPINE FUMARATE
     Indication: SCHIZOPHRENIA
     Dosage: 600.0MG UNKNOWN
     Route: 048
  5. SEROQUEL [Suspect]
     Active Substance: QUETIAPINE FUMARATE
     Indication: SLEEP APNOEA SYNDROME
     Dosage: 200.0MG UNKNOWN
     Route: 048
  6. DEPAKOTE VALPROIC ACID [Concomitant]
  7. SEROQUEL [Suspect]
     Active Substance: QUETIAPINE FUMARATE
     Indication: SCHIZOPHRENIA
     Dosage: 800.0MG UNKNOWN
     Route: 048
  8. SEROQUEL [Suspect]
     Active Substance: QUETIAPINE FUMARATE
     Indication: SLEEP APNOEA SYNDROME
     Dosage: 100 MG. ONE A DAY BEFORE SLEEP UNKNOWN
     Route: 048
  9. COGENTIN [Suspect]
     Active Substance: BENZTROPINE MESYLATE
     Route: 065
  10. SEROQUEL [Suspect]
     Active Substance: QUETIAPINE FUMARATE
     Indication: SLEEP APNOEA SYNDROME
     Dosage: 800.0MG UNKNOWN
     Route: 048
  11. SEROQUEL [Suspect]
     Active Substance: QUETIAPINE FUMARATE
     Indication: INSOMNIA
     Dosage: 800.0MG UNKNOWN
     Route: 048
  12. BENZTROPINE. [Suspect]
     Active Substance: BENZTROPINE
     Route: 065
  13. SEROQUEL [Suspect]
     Active Substance: QUETIAPINE FUMARATE
     Indication: SLEEP APNOEA SYNDROME
     Dosage: 600.0MG UNKNOWN
     Route: 048
  14. SEROQUEL [Suspect]
     Active Substance: QUETIAPINE FUMARATE
     Indication: INSOMNIA
     Dosage: 100 MG. ONE A DAY BEFORE SLEEP UNKNOWN
     Route: 048
  15. SEROQUEL [Suspect]
     Active Substance: QUETIAPINE FUMARATE
     Indication: INSOMNIA
     Dosage: 200.0MG UNKNOWN
     Route: 048

REACTIONS (6)
  - Diabetes mellitus [Unknown]
  - Asthma [Unknown]
  - Poisoning [Unknown]
  - Product use in unapproved indication [Unknown]
  - Drug dependence [Unknown]
  - Weight increased [Unknown]
